FAERS Safety Report 7109922-4 (Version None)
Quarter: 2010Q4

REPORT INFORMATION
  Report Type: 
  Country: None (occurrence: None)
  Receive Date: 20101118
  Receipt Date: 20101108
  Transmission Date: 20110411
  Serious: Yes (Other)
  Sender: FDA-Public Use
  Company Number: IT-JNJFOC-20101003102

PATIENT
  Age: 56 Year
  Sex: Male

DRUGS (5)
  1. REMICADE [Suspect]
     Indication: PSORIATIC ARTHROPATHY
     Route: 042
  2. ARAVA [Suspect]
     Indication: PSORIATIC ARTHROPATHY
     Route: 048
  3. DEFLAN [Concomitant]
  4. NAPROSYN [Concomitant]
  5. LANSOPRAZOLE [Concomitant]

REACTIONS (3)
  - ASTHENIA [None]
  - DIARRHOEA [None]
  - WEIGHT DECREASED [None]
